FAERS Safety Report 9436841 (Version 2)
Quarter: 2013Q3

REPORT INFORMATION
  Report Type: Spontaneous
  Country: US (occurrence: US)
  Receive Date: 20130802
  Receipt Date: 20130816
  Transmission Date: 20140515
  Serious: No
  Sender: FDA-Public Use
  Company Number: US-PFIZER INC-2013223135

PATIENT
  Sex: 0

DRUGS (1)
  1. NITROGLYCERIN [Suspect]
     Dosage: UNK

REACTIONS (1)
  - Drug ineffective [Unknown]
